FAERS Safety Report 8044117-1 (Version None)
Quarter: 2012Q1

REPORT INFORMATION
  Report Type: 
  Country: None (occurrence: None)
  Receive Date: 20120113
  Receipt Date: 20120110
  Transmission Date: 20120608
  Serious: Yes (Death, Hospitalization, Other)
  Sender: FDA-Public Use
  Company Number: US-TEVA-312208USA

PATIENT
  Sex: Female

DRUGS (4)
  1. CLOZAPINE [Suspect]
     Indication: PRODUCT USED FOR UNKNOWN INDICATION
     Dosage: 400 MILLIGRAM;
  2. CLONAZEPAM [Concomitant]
     Dosage: 1.5 MILLIGRAM;
  3. QUETIAPINE [Concomitant]
     Dosage: 1200 MILLIGRAM;
  4. LAMOTRIGINE [Concomitant]
     Dosage: 300 MILLIGRAM;

REACTIONS (2)
  - ESCHERICHIA SEPSIS [None]
  - RESPIRATORY FAILURE [None]
